FAERS Safety Report 7868329-2 (Version None)
Quarter: 2011Q4

REPORT INFORMATION
  Report Type: 
  Country: None (occurrence: None)
  Receive Date: 20111028
  Receipt Date: 20111021
  Transmission Date: 20120403
  Serious: Yes (Other)
  Sender: FDA-Public Use
  Company Number: US-US-EMD SERONO, INC.-7007655

PATIENT
  Sex: Male
  Weight: 113 kg

DRUGS (3)
  1. UNSPECIFIED PAINKILLERS [Concomitant]
     Indication: PAIN IN EXTREMITY
  2. REBIF [Suspect]
     Indication: MULTIPLE SCLEROSIS
     Route: 058
     Dates: start: 20080501
  3. PROPRANOLOL [Concomitant]
     Indication: TREMOR

REACTIONS (4)
  - MULTIPLE SCLEROSIS RELAPSE [None]
  - DEPRESSION [None]
  - INJECTION SITE ERYTHEMA [None]
  - TYPE 2 DIABETES MELLITUS [None]
